FAERS Safety Report 5200702-3 (Version None)
Quarter: 2006Q4

REPORT INFORMATION
  Report Type: 
  Country: None (occurrence: None)
  Receive Date: 20061016
  Receipt Date: 20060627
  Transmission Date: 20070319
  Serious: No
  Sender: FDA-Public Use
  Company Number: 2006SP002563

PATIENT
  Age: 40 Year
  Sex: Female
  Weight: 69.4003 kg

DRUGS (2)
  1. LUNESTA [Suspect]
     Indication: INSOMNIA
     Dosage: HS; ORAL
     Route: 048
     Dates: start: 20051001, end: 20060626
  2. MELATONIN [Concomitant]

REACTIONS (1)
  - WEIGHT INCREASED [None]
